FAERS Safety Report 8396202-2 (Version None)
Quarter: 2012Q2

REPORT INFORMATION
  Report Type: 
  Country: None (occurrence: None)
  Receive Date: 20120530
  Receipt Date: 20120524
  Transmission Date: 20120825
  Serious: Yes (Hospitalization)
  Sender: FDA-Public Use
  Company Number: FR-GLAXOSMITHKLINE-B0803633A

PATIENT
  Sex: Male

DRUGS (6)
  1. ZYPREXA [Suspect]
     Indication: BIPOLAR DISORDER
     Dosage: 10MG PER DAY
     Route: 048
     Dates: start: 20110101
  2. TRANXENE [Suspect]
     Indication: BIPOLAR DISORDER
     Dosage: 7MG PER DAY
     Route: 048
     Dates: start: 20110101
  3. LAMICTAL [Suspect]
     Indication: BIPOLAR DISORDER
     Route: 048
     Dates: start: 20110101
  4. HUMALOG [Concomitant]
     Route: 065
  5. LEVEMIR [Concomitant]
     Route: 065
  6. TERCIAN [Suspect]
     Indication: BIPOLAR DISORDER
     Dosage: 37.5MG PER DAY
     Route: 048
     Dates: start: 20110101

REACTIONS (3)
  - FALL [None]
  - MOTOR DYSFUNCTION [None]
  - AKINESIA [None]
